FAERS Safety Report 23461265 (Version 1)
Quarter: 2024Q1

REPORT INFORMATION
  Report Type: Spontaneous
  Country: US (occurrence: None)
  Receive Date: 20240130
  Receipt Date: 20240130
  Transmission Date: 20240410
  Serious: No
  Sender: FDA-Public Use
  Company Number: None

PATIENT
  Age: 72 Year
  Sex: Female

DRUGS (1)
  1. ESTRADIOL\ESTRIOL\PRASTERONE [Suspect]
     Active Substance: ESTRADIOL\ESTRIOL\PRASTERONE

REACTIONS (2)
  - Application site rash [None]
  - Application site pain [None]

NARRATIVE: CASE EVENT DATE: 20240130
